FAERS Safety Report 5326697-X (Version None)
Quarter: 2007Q2

REPORT INFORMATION
  Report Type: 
  Country: None (occurrence: None)
  Receive Date: 20070516
  Receipt Date: 20070504
  Transmission Date: 20071010
  Serious: Yes (Other)
  Sender: FDA-Public Use
  Company Number: DE-SHR-DE-2006-025855

PATIENT
  Age: 70 Year
  Sex: Female

DRUGS (3)
  1. SOTALOL HYDROCHLORIDE [Suspect]
     Dosage: 80 MG, 1X/DAY
     Route: 048
     Dates: start: 19970101
  2. EUTHYROX [Concomitant]
     Indication: THYROID DISORDER
     Dosage: 50 A?G, 1X/DAY
     Route: 048
     Dates: start: 20040108
  3. METOHEXAL [Concomitant]
     Dosage: UNK, UNK
     Dates: start: 20060404

REACTIONS (2)
  - BREAST DISCOMFORT [None]
  - BREAST ENLARGEMENT [None]
